FAERS Safety Report 7563464-0 (Version None)
Quarter: 2011Q2

REPORT INFORMATION
  Report Type: 
  Country: None (occurrence: None)
  Receive Date: 20110622
  Receipt Date: 20110609
  Transmission Date: 20111010
  Serious: Yes (Hospitalization, Other)
  Sender: FDA-Public Use
  Company Number: BR-ELI_LILLY_AND_COMPANY-BR201106003910

PATIENT
  Sex: Female

DRUGS (2)
  1. CYMBALTA [Suspect]
     Dosage: UNK
     Route: 065
  2. CYMBALTA [Suspect]
     Dosage: UNK
     Route: 065

REACTIONS (1)
  - PERIPHERAL NERVE OPERATION [None]
